FAERS Safety Report 13618877 (Version 4)
Quarter: 2017Q3

REPORT INFORMATION
  Report Type: Spontaneous
  Country: US (occurrence: US)
  Receive Date: 20170606
  Receipt Date: 20170731
  Transmission Date: 20171127
  Serious: No
  Sender: FDA-Public Use
  Company Number: US-ACTELION-A-US2017-154768

PATIENT
  Age: 57 Year
  Sex: Female

DRUGS (9)
  1. ADEMPAS [Suspect]
     Active Substance: RIOCIGUAT
     Indication: PRODUCT USED FOR UNKNOWN INDICATION
     Dosage: 1 MG, TID
     Route: 065
     Dates: start: 20170523
  2. SIMVASTATIN. [Concomitant]
     Active Substance: SIMVASTATIN
  3. NOVOLOG [Concomitant]
     Active Substance: INSULIN ASPART
  4. INVOKAMET [Concomitant]
     Active Substance: CANAGLIFLOZIN\METFORMIN HYDROCHLORIDE
  5. OPSUMIT [Suspect]
     Active Substance: MACITENTAN
     Indication: PULMONARY ARTERIAL HYPERTENSION
     Dosage: 10 MG, QD
     Route: 048
     Dates: start: 20170523
  6. KLOR-CON [Concomitant]
     Active Substance: POTASSIUM CHLORIDE
  7. AMLODIPINE [Concomitant]
     Active Substance: AMLODIPINE BESYLATE
  8. TORSEMIDE. [Concomitant]
     Active Substance: TORSEMIDE
  9. SPIRONOLACTONE. [Concomitant]
     Active Substance: SPIRONOLACTONE

REACTIONS (5)
  - Oxygen saturation decreased [Not Recovered/Not Resolved]
  - Headache [Not Recovered/Not Resolved]
  - Fluid retention [Recovered/Resolved]
  - Breast pain [Unknown]
  - Concomitant disease aggravated [Not Recovered/Not Resolved]

NARRATIVE: CASE EVENT DATE: 20170523
